FAERS Safety Report 5753447-5 (Version None)
Quarter: 2008Q2

REPORT INFORMATION
  Report Type: 
  Country: None (occurrence: None)
  Receive Date: 20080530
  Receipt Date: 20080519
  Transmission Date: 20081010
  Serious: Yes (Hospitalization, Other)
  Sender: FDA-Public Use
  Company Number: GB-JNJFOC-20070404293

PATIENT
  Sex: Female
  Weight: 59 kg

DRUGS (15)
  1. REMICADE [Suspect]
     Indication: MIXED CONNECTIVE TISSUE DISEASE
     Route: 042
  2. REMICADE [Suspect]
     Indication: CROHN'S DISEASE
     Route: 042
  3. AZATHIOPRINE [Concomitant]
  4. PREDNISOLONE [Concomitant]
  5. ADALAT [Concomitant]
  6. ARCOXIA [Concomitant]
  7. CALCIUM [Concomitant]
  8. DOMPERIDONE [Concomitant]
  9. FYBOGEL [Concomitant]
  10. LACTULOSE [Concomitant]
  11. LOSEC I.V. [Concomitant]
  12. SALAZOPYRIN [Concomitant]
  13. SENNA [Concomitant]
  14. SEVREDOL [Concomitant]
  15. ZOMIG [Concomitant]

REACTIONS (5)
  - CHEILITIS GRANULOMATOSA [None]
  - CLOSTRIDIAL INFECTION [None]
  - CONDITION AGGRAVATED [None]
  - CROHN'S DISEASE [None]
  - MIXED CONNECTIVE TISSUE DISEASE [None]
